FAERS Safety Report 24142773 (Version 1)
Quarter: 2024Q3

REPORT INFORMATION
  Report Type: Spontaneous
  Country: PL (occurrence: PL)
  Receive Date: 20240726
  Receipt Date: 20240726
  Transmission Date: 20241017
  Serious: Yes (Hospitalization, Other)
  Sender: NOVARTIS
  Company Number: PL-002147023-NVSC2024PL152903

PATIENT
  Age: 57 Year
  Sex: Female
  Weight: 66 kg

DRUGS (2)
  1. COSENTYX [Suspect]
     Active Substance: SECUKINUMAB
     Indication: Psoriasis
     Dosage: UNK
     Route: 065
     Dates: start: 20200206, end: 20200309
  2. COSENTYX [Suspect]
     Active Substance: SECUKINUMAB
     Indication: Psoriatic arthropathy
     Dosage: 300 MG, Q4W
     Route: 058
     Dates: end: 20240125

REACTIONS (9)
  - Hepatic cirrhosis [Unknown]
  - Hepatic enzyme increased [Unknown]
  - Blood bilirubin increased [Unknown]
  - Jaundice [Unknown]
  - COVID-19 [Unknown]
  - Drug ineffective [Unknown]
  - Weight increased [Unknown]
  - Transaminases increased [Unknown]
  - Skin disorder [Unknown]
